FAERS Safety Report 16252890 (Version 1)
Quarter: 2019Q2

REPORT INFORMATION
  Report Type: Report from Study
  Country: US (occurrence: US)
  Receive Date: 20190429
  Receipt Date: 20190429
  Transmission Date: 20190711
  Serious: Yes (Hospitalization)
  Sender: FDA-Public Use
  Company Number: US-ACTELION-A-US2019-189736

PATIENT
  Sex: Female
  Weight: 72.56 kg

DRUGS (2)
  1. OPSUMIT [Suspect]
     Active Substance: MACITENTAN
     Indication: PULMONARY ARTERIAL HYPERTENSION
     Dosage: 10 MG, BID
     Route: 048
  2. REVATIO [Concomitant]
     Active Substance: SILDENAFIL CITRATE

REACTIONS (6)
  - Syncope [Unknown]
  - Vertigo [Not Recovered/Not Resolved]
  - Dizziness [Unknown]
  - Subdural haematoma [Recovering/Resolving]
  - Skull fracture [Unknown]
  - Headache [Not Recovered/Not Resolved]
